FAERS Safety Report 16877642 (Version 4)
Quarter: 2019Q4

REPORT INFORMATION
  Report Type: Spontaneous
  Country: US (occurrence: US)
  Receive Date: 20191002
  Receipt Date: 20191120
  Transmission Date: 20200122
  Serious: No
  Sender: FDA-Public Use
  Company Number: US-PFIZER INC-2019423696

PATIENT
  Age: 57 Year
  Sex: Female
  Weight: 65.77 kg

DRUGS (7)
  1. LYRICA CR [Suspect]
     Active Substance: PREGABALIN
     Indication: NEURALGIA
     Dosage: 165 MG, 1X/DAY
     Route: 048
     Dates: start: 201908
  2. LYRICA CR [Suspect]
     Active Substance: PREGABALIN
     Indication: MYALGIA
  3. LYRICA CR [Suspect]
     Active Substance: PREGABALIN
     Indication: MUSCLE SPASMS
  4. LYRICA CR [Suspect]
     Active Substance: PREGABALIN
     Indication: MUSCLE TIGHTNESS
  5. ESTRADIOL. [Concomitant]
     Active Substance: ESTRADIOL
     Indication: OESTROGEN REPLACEMENT THERAPY
     Dosage: UNK UNK, 2X/WEEK (0.375)
     Dates: start: 201208
  6. LYRICA CR [Suspect]
     Active Substance: PREGABALIN
     Indication: FIBROMYALGIA
  7. MELOXICAM. [Concomitant]
     Active Substance: MELOXICAM
     Dosage: 15 MG, AS NEEDED

REACTIONS (1)
  - Therapeutic product effect incomplete [Not Recovered/Not Resolved]

NARRATIVE: CASE EVENT DATE: 2019
